FAERS Safety Report 5141258-3 (Version None)
Quarter: 2006Q4

REPORT INFORMATION
  Report Type: 
  Country: None (occurrence: None)
  Receive Date: 20061101
  Receipt Date: 20061018
  Transmission Date: 20070319
  Serious: Yes (Other)
  Sender: FDA-Public Use
  Company Number: PHEH2006US13149

PATIENT
  Age: 75 Year
  Sex: Male
  Weight: 92.97 kg

DRUGS (6)
  1. AVASTIN [Concomitant]
  2. CARBOPLATIN [Concomitant]
  3. TAXOL [Concomitant]
  4. NEULASTA [Concomitant]
  5. PROCRIT [Concomitant]
  6. ZOMETA [Suspect]
     Indication: METASTASES TO BONE
     Dosage: 4 MG MONTHLY
     Dates: start: 20051004, end: 20060926

REACTIONS (2)
  - OSTEONECROSIS [None]
  - PAIN [None]
